FAERS Safety Report 6892531-X (Version None)
Quarter: 2010Q3

REPORT INFORMATION
  Report Type: 
  Country: None (occurrence: None)
  Receive Date: 20100731
  Receipt Date: 20080625
  Transmission Date: 20110219
  Serious: No
  Sender: FDA-Public Use
  Company Number: US-PFIZER INC-2008053748

PATIENT
  Sex: Male
  Weight: 80.74 kg

DRUGS (8)
  1. NEURONTIN [Suspect]
     Indication: NEURALGIA
     Dates: start: 20080501, end: 20080623
  2. HYZAAR [Concomitant]
     Indication: HYPERTENSION
  3. METOPROLOL TARTRATE [Concomitant]
     Indication: HYPERTENSION
  4. DILANTIN [Concomitant]
     Indication: CONVULSION
  5. PHENOBARBITAL [Concomitant]
     Indication: CONVULSION
  6. ACETYLSALICYLIC ACID SRT [Concomitant]
  7. MULTI-VITAMINS [Concomitant]
  8. ACIPHEX [Concomitant]

REACTIONS (1)
  - OEDEMA PERIPHERAL [None]
